FAERS Safety Report 6741363-1 (Version None)
Quarter: 2010Q2

REPORT INFORMATION
  Report Type: 
  Country: None (occurrence: None)
  Receive Date: 20100526
  Receipt Date: 20100518
  Transmission Date: 20101027
  Serious: Yes (Life-Threatening)
  Sender: FDA-Public Use
  Company Number: FR-SANOFI-AVENTIS-2010SA028305

PATIENT
  Age: 24 Year
  Sex: Female

DRUGS (2)
  1. PLAQUENIL [Suspect]
     Indication: SYSTEMIC LUPUS ERYTHEMATOSUS
     Route: 048
     Dates: start: 20090101, end: 20091207
  2. DISULONE [Suspect]
     Route: 048
     Dates: start: 20091026, end: 20091125

REACTIONS (3)
  - CYANOSIS [None]
  - DYSPNOEA [None]
  - METHAEMOGLOBINAEMIA [None]
